FAERS Safety Report 25893402 (Version 1)
Quarter: 2025Q4

REPORT INFORMATION
  Report Type: Spontaneous
  Country: US (occurrence: US)
  Receive Date: 20251008
  Receipt Date: 20251008
  Transmission Date: 20260117
  Serious: No
  Sender: JOHNSON AND JOHNSON
  Company Number: US-JNJFOC-20250947214

PATIENT
  Age: 19 Year
  Sex: Female

DRUGS (1)
  1. TREMFYA [Suspect]
     Active Substance: GUSELKUMAB
     Indication: Crohn^s disease
     Route: 058

REACTIONS (4)
  - Blood thyroid stimulating hormone abnormal [Unknown]
  - Rash erythematous [Unknown]
  - Swelling [Unknown]
  - Paraesthesia [Unknown]
